FAERS Safety Report 8303443-9 (Version None)
Quarter: 2012Q2

REPORT INFORMATION
  Report Type: 
  Country: None (occurrence: None)
  Receive Date: 20120423
  Receipt Date: 20120418
  Transmission Date: 20120825
  Serious: No
  Sender: FDA-Public Use
  Company Number: US-PFIZER INC-2012096613

PATIENT
  Sex: Female
  Weight: 68.027 kg

DRUGS (2)
  1. ADVIL PM [Suspect]
     Indication: STRESS
  2. ADVIL PM [Suspect]
     Indication: HEADACHE
     Dosage: UNK, 1X/DAY
     Route: 048
     Dates: start: 20120417, end: 20120418

REACTIONS (1)
  - SWELLING FACE [None]
